FAERS Safety Report 8382735-1 (Version None)
Quarter: 2012Q2

REPORT INFORMATION
  Report Type: 
  Country: None (occurrence: None)
  Receive Date: 20120524
  Receipt Date: 20120413
  Transmission Date: 20120825
  Serious: No
  Sender: FDA-Public Use
  Company Number: US-ALLERGAN-1205360US

PATIENT
  Age: 90 Year
  Sex: Female

DRUGS (3)
  1. LASTACAFT [Suspect]
     Indication: EYE PRURITUS
     Dosage: 2 GTT, QAM
     Route: 047
     Dates: start: 20120413
  2. PROPYLENE GLYCOL [Concomitant]
     Indication: EYE PRURITUS
  3. POTASSIUM CHLORIDE [Concomitant]
     Indication: PRODUCT USED FOR UNKNOWN INDICATION
     Dosage: 20 MEQ, QD

REACTIONS (1)
  - SOMNOLENCE [None]
